FAERS Safety Report 20859779 (Version 1)
Quarter: 2022Q2

REPORT INFORMATION
  Report Type: Spontaneous
  Country: BR (occurrence: BR)
  Receive Date: 20220523
  Receipt Date: 20220523
  Transmission Date: 20220721
  Serious: Yes (Other)
  Sender: FDA-Public Use
  Company Number: BR-Y-MABS THERAPEUTICS, INC.-EAP2022-BR-000710

PATIENT

DRUGS (4)
  1. DANYELZA [Suspect]
     Active Substance: NAXITAMAB-GQGK
     Indication: Neuroblastoma
     Dosage: CYCLE 1, DOSE 1
     Route: 042
     Dates: start: 20220404
  2. DANYELZA [Suspect]
     Active Substance: NAXITAMAB-GQGK
     Dosage: CYCLE 2, DOSE 1
     Route: 042
  3. TRETINOIN [Concomitant]
     Active Substance: TRETINOIN
  4. PREGABALIN [Concomitant]
     Active Substance: PREGABALIN

REACTIONS (2)
  - Seizure [Recovered/Resolved]
  - Stupor [Unknown]
